FAERS Safety Report 10700649 (Version 1)
Quarter: 2015Q1

REPORT INFORMATION
  Report Type: Spontaneous
  Country: DE (occurrence: DE)
  Receive Date: 20150109
  Receipt Date: 20150109
  Transmission Date: 20150721
  Serious: Yes (Other)
  Sender: FDA-Public Use
  Company Number: DE-PFIZER INC-2015002549

PATIENT
  Sex: Female

DRUGS (1)
  1. VFEND [Suspect]
     Active Substance: VORICONAZOLE
     Dosage: 200 UNK, 2X/DAY
     Route: 048

REACTIONS (4)
  - Loss of consciousness [Unknown]
  - Constipation [Unknown]
  - Visual impairment [Unknown]
  - Decreased appetite [Unknown]
